FAERS Safety Report 8108345-9 (Version None)
Quarter: 2012Q1

REPORT INFORMATION
  Report Type: 
  Country: None (occurrence: None)
  Receive Date: 20120202
  Receipt Date: 20120124
  Transmission Date: 20120608
  Serious: Yes (Hospitalization)
  Sender: FDA-Public Use
  Company Number: PHHY2012FR007185

PATIENT
  Sex: Male

DRUGS (4)
  1. TETRAZEPAM [Suspect]
     Indication: NECK PAIN
     Dosage: 25 MG, QD AT NIGHT
     Dates: start: 20111122, end: 20111202
  2. VOLTAREN [Suspect]
     Indication: NECK PAIN
     Dosage: 1 DF, BID
     Route: 048
     Dates: start: 20111122, end: 20111203
  3. ESOMEPRAZOLE [Suspect]
     Indication: NECK PAIN
     Dosage: 1 DF, QD
     Route: 048
     Dates: start: 20111122, end: 20111203
  4. TRAMADOL HCL [Suspect]
     Dosage: 1 DF, ONCE/SINGLE
     Dates: start: 20111122

REACTIONS (18)
  - HEPATITIS CHOLESTATIC [None]
  - MYALGIA [None]
  - PYREXIA [None]
  - SKIN EXFOLIATION [None]
  - BLOOD ALBUMIN DECREASED [None]
  - LEUKOCYTOSIS [None]
  - HEPATOSPLENOMEGALY [None]
  - PLEURAL EFFUSION [None]
  - WEIGHT DECREASED [None]
  - ALPHA 1 GLOBULIN INCREASED [None]
  - ASTHENIA [None]
  - JAUNDICE [None]
  - INFLAMMATION [None]
  - HEADACHE [None]
  - CARDIAC MURMUR [None]
  - MUSCULAR WEAKNESS [None]
  - C-REACTIVE PROTEIN INCREASED [None]
  - ALPHA 2 GLOBULIN INCREASED [None]
